FAERS Safety Report 7605822-1 (Version None)
Quarter: 2011Q3

REPORT INFORMATION
  Report Type: 
  Country: None (occurrence: None)
  Receive Date: 20110713
  Receipt Date: 20110705
  Transmission Date: 20111222
  Serious: Yes (Other)
  Sender: FDA-Public Use
  Company Number: NL-BAYER-2011-058119

PATIENT
  Age: 44 Year
  Sex: Male

DRUGS (1)
  1. ULTRAVIST 300 [Suspect]
     Indication: COMPUTERISED TOMOGRAM ABDOMEN
     Dosage: 135 ML, UNK
     Route: 042
     Dates: start: 20110704, end: 20110704

REACTIONS (5)
  - SENSE OF OPPRESSION [None]
  - CHILLS [None]
  - DIZZINESS [None]
  - SNEEZING [None]
  - PHARYNGEAL OEDEMA [None]
